FAERS Safety Report 13042834 (Version 3)
Quarter: 2017Q2

REPORT INFORMATION
  Report Type: Report from Study
  Country: US (occurrence: US)
  Receive Date: 20161219
  Receipt Date: 20170417
  Transmission Date: 20170830
  Serious: Yes (Hospitalization, Other)
  Sender: FDA-Public Use
  Company Number: US-ACTELION-A-NJ2016-145308

PATIENT
  Age: 64 Year
  Sex: Female
  Weight: 95.24 kg

DRUGS (2)
  1. OPSUMIT [Suspect]
     Active Substance: MACITENTAN
     Indication: PULMONARY HYPERTENSION
     Dosage: 10 MG, QD
     Route: 048
     Dates: start: 20150908
  2. SILDENAFIL. [Concomitant]
     Active Substance: SILDENAFIL

REACTIONS (12)
  - Pneumonia [Unknown]
  - Cardiac disorder [Unknown]
  - Stress [Unknown]
  - Dyspnoea [Unknown]
  - Weight increased [Unknown]
  - General physical health deterioration [Unknown]
  - Oedema peripheral [Unknown]
  - Influenza [Unknown]
  - Asthma [Unknown]
  - Peripheral venous disease [Unknown]
  - Condition aggravated [Unknown]
  - Lung disorder [Unknown]
